FAERS Safety Report 19680633 (Version 1)
Quarter: 2021Q3

REPORT INFORMATION
  Report Type: Spontaneous
  Country: US (occurrence: US)
  Receive Date: 20210810
  Receipt Date: 20210810
  Transmission Date: 20211014
  Serious: No
  Sender: FDA-Public Use
  Company Number: US-GW PHARMA-202106USGW02798

PATIENT

DRUGS (2)
  1. EPIDIOLEX [Suspect]
     Active Substance: CANNABIDIOL
     Indication: EPILEPSY
     Dosage: 120 MILLIGRAM, BID
     Route: 048
     Dates: start: 20200630
  2. EPIDIOLEX [Suspect]
     Active Substance: CANNABIDIOL
     Indication: STATUS EPILEPTICUS

REACTIONS (5)
  - Product administered to patient of inappropriate age [Unknown]
  - Nausea [Unknown]
  - Emergency care [Not Recovered/Not Resolved]
  - Expired product administered [Unknown]
  - Product use in unapproved indication [Unknown]
